FAERS Safety Report 16237494 (Version 1)
Quarter: 2019Q2

REPORT INFORMATION
  Report Type: Spontaneous
  Country: US (occurrence: US)
  Receive Date: 20190424
  Receipt Date: 20190424
  Transmission Date: 20190711
  Serious: Yes (Other)
  Sender: FDA-Public Use
  Company Number: None

PATIENT
  Age: 68 Year
  Sex: Female
  Weight: 90 kg

DRUGS (10)
  1. METHADONE [Suspect]
     Active Substance: METHADONE HYDROCHLORIDE
  2. CELEXA [Concomitant]
     Active Substance: CITALOPRAM HYDROBROMIDE
  3. VITAMIN B + C [Concomitant]
  4. RELISTOR [Suspect]
     Active Substance: METHYLNALTREXONE BROMIDE
     Indication: CONSTIPATION
     Route: 058
  5. ATIVAN [Concomitant]
     Active Substance: LORAZEPAM
  6. MAGNESIUM [Concomitant]
     Active Substance: MAGNESIUM
  7. TORSEMIDE. [Concomitant]
     Active Substance: TORSEMIDE
  8. VIT D [Concomitant]
     Active Substance: VITAMIN D NOS
  9. POTASSIUM [Concomitant]
     Active Substance: POTASSIUM
  10. DAILY VITAMIN [Concomitant]
     Active Substance: VITAMINS

REACTIONS (2)
  - Constipation [None]
  - Drug withdrawal syndrome [None]

NARRATIVE: CASE EVENT DATE: 20190417
